FAERS Safety Report 11511317 (Version 1)
Quarter: 2015Q3

REPORT INFORMATION
  Report Type: Other
  Country: GB (occurrence: GB)
  Receive Date: 20150915
  Receipt Date: 20150915
  Transmission Date: 20151125
  Serious: Yes (Life-Threatening)
  Sender: FDA-Public Use
  Company Number: GB-MYLANLABS-2015M1030035

PATIENT

DRUGS (11)
  1. FLUTIFORM [Concomitant]
     Active Substance: FLUTICASONE PROPIONATE\FORMOTEROL FUMARATE
     Dosage: 2 DF, BID
     Route: 055
     Dates: start: 20150316, end: 20150710
  2. AMLODIPINE [Concomitant]
     Active Substance: AMLODIPINE BESYLATE
     Dosage: 1 DF, QD
     Dates: start: 20150316, end: 20150805
  3. NEDOCROMIL SODIUM. [Concomitant]
     Active Substance: NEDOCROMIL SODIUM
     Dosage: 2 GTT, PRN (ONE DROP EACH EYE, TWICE A DAY AS REQUIRED)
     Route: 050
     Dates: start: 20150316
  4. SALBUTAMOL [Concomitant]
     Active Substance: ALBUTEROL
     Dosage: 2 DF, PRN (2 PUFFS FOUR TIMES DAILY AS REQUIRED)
     Route: 055
     Dates: start: 20150316
  5. FYBOGEL [Concomitant]
     Active Substance: PLANTAGO OVATA SEED
     Dosage: 1 DF, BID
     Dates: start: 20150316
  6. LORATADINE. [Concomitant]
     Active Substance: LORATADINE
     Dosage: 1 DF, QD
     Dates: start: 20150316
  7. FERROUS FUMARATE [Concomitant]
     Active Substance: FERROUS FUMARATE
     Dosage: 1 DF, BID
     Dates: start: 20150316
  8. BETAMETHASONE VALERATE. [Concomitant]
     Active Substance: BETAMETHASONE VALERATE
     Dosage: 1 DF, BID (FOR 7 DAYS THEN STOP FOR 2 WEEK)
     Dates: start: 20150605, end: 20150612
  9. INDAPAMIDE. [Suspect]
     Active Substance: INDAPAMIDE
     Dosage: UNK
     Dates: start: 20150805
  10. PERINDOPRIL ERBUMINE. [Concomitant]
     Active Substance: PERINDOPRIL ERBUMINE
     Dosage: 1 DF, QD
     Dates: start: 20150316
  11. SERETIDE [Concomitant]
     Active Substance: FLUTICASONE FUROATE\SALMETEROL XINAFOATE
     Dosage: 2 DF, BID
     Route: 055
     Dates: start: 20150609

REACTIONS (2)
  - Hyponatraemia [Recovering/Resolving]
  - Seizure [Unknown]

NARRATIVE: CASE EVENT DATE: 20150820
